FAERS Safety Report 14494309 (Version 1)
Quarter: 2018Q1

REPORT INFORMATION
  Report Type: Spontaneous
  Country: FR (occurrence: FR)
  Receive Date: 20180206
  Receipt Date: 20180206
  Transmission Date: 20180509
  Serious: Yes (Life-Threatening)
  Sender: FDA-Public Use
  Company Number: FR-MYLANLABS-2018M1008092

PATIENT
  Age: 25 Year
  Sex: Female

DRUGS (1)
  1. VERAPAMIL [Suspect]
     Active Substance: VERAPAMIL HYDROCHLORIDE
     Indication: PRODUCT USED FOR UNKNOWN INDICATION
     Dosage: 3 G, TOTAL
     Route: 048
     Dates: start: 20180106, end: 20180106

REACTIONS (2)
  - Cardiogenic shock [Not Recovered/Not Resolved]
  - Poisoning deliberate [Not Recovered/Not Resolved]

NARRATIVE: CASE EVENT DATE: 20180106
